FAERS Safety Report 7931496-6 (Version None)
Quarter: 2011Q4

REPORT INFORMATION
  Report Type: 
  Country: None (occurrence: None)
  Receive Date: 20111121
  Receipt Date: 20111121
  Transmission Date: 20120403
  Serious: Yes (Other)
  Sender: FDA-Public Use
  Company Number: None

PATIENT
  Age: 61 Year
  Sex: Female
  Weight: 58.059 kg

DRUGS (1)
  1. ANASTRAZOLE [Suspect]
     Indication: BREAST CANCER IN SITU
     Dosage: 1 MG
     Dates: start: 20111104, end: 20111117

REACTIONS (10)
  - POLLAKIURIA [None]
  - JOINT STIFFNESS [None]
  - DEPRESSION [None]
  - HOT FLUSH [None]
  - FATIGUE [None]
  - INSOMNIA [None]
  - MICTURITION URGENCY [None]
  - SLUGGISHNESS [None]
  - NERVOUS SYSTEM DISORDER [None]
  - DEPRESSED MOOD [None]
